FAERS Safety Report 17336155 (Version 1)
Quarter: 2020Q1

REPORT INFORMATION
  Report Type: Spontaneous
  Country: SE (occurrence: SE)
  Receive Date: 20200128
  Receipt Date: 20200128
  Transmission Date: 20200409
  Serious: Yes (Hospitalization)
  Sender: FDA-Public Use
  Company Number: SE-MYLANLABS-2020M1009208

PATIENT
  Sex: Male

DRUGS (3)
  1. CIRCADIN [Suspect]
     Active Substance: MELATONIN
     Indication: PRODUCT USED FOR UNKNOWN INDICATION
     Dosage: 2 MG, 15-30 ST
     Route: 048
     Dates: start: 20180303, end: 20180303
  2. ATARAX [Suspect]
     Active Substance: HYDROXYZINE HYDROCHLORIDE
     Indication: PRODUCT USED FOR UNKNOWN INDICATION
     Dosage: 25 MG, 25 ST EV MER
     Route: 048
     Dates: start: 20180303, end: 20180303
  3. LERGIGAN (PROMETHAZINE HYDROCHLORIDE) [Suspect]
     Active Substance: PROMETHAZINE HYDROCHLORIDE
     Indication: PRODUCT USED FOR UNKNOWN INDICATION
     Dosage: 25 MG, KANSKE 15 ST
     Route: 048
     Dates: start: 20180303, end: 20180303

REACTIONS (5)
  - Intentional self-injury [Unknown]
  - Muscle twitching [Unknown]
  - Dysarthria [Unknown]
  - Intentional overdose [Unknown]
  - Somnolence [Unknown]

NARRATIVE: CASE EVENT DATE: 20180303
